FAERS Safety Report 7548388-7 (Version None)
Quarter: 2011Q2

REPORT INFORMATION
  Report Type: 
  Country: None (occurrence: None)
  Receive Date: 20110608
  Receipt Date: 20110526
  Transmission Date: 20111010
  Serious: Yes (Disabling)
  Sender: FDA-Public Use
  Company Number: 2011MA006532

PATIENT
  Age: 76 Year
  Sex: Male

DRUGS (11)
  1. HYDROCORTISONE [Concomitant]
  2. BICALUTAMIDE [Suspect]
     Dosage: 50 MG;	; PO
     Route: 048
     Dates: start: 20110104, end: 20110301
  3. FLOXACILLIN SODIUM [Concomitant]
  4. BISOPROLOL [Concomitant]
  5. HYPROMELLOSE [Concomitant]
  6. ACETYLSALICYLIC ACID [Concomitant]
  7. ZOLADEX [Concomitant]
  8. KETOCONAZOLE [Concomitant]
  9. BETAMETHASONE [Concomitant]
  10. E45 ITCH RELIEF [Concomitant]
  11. ACETAMINOPHEN [Concomitant]

REACTIONS (5)
  - EYE PRURITUS [None]
  - EYE PAIN [None]
  - PAIN OF SKIN [None]
  - PRURITUS [None]
  - PENILE PAIN [None]
